FAERS Safety Report 5477945-7 (Version None)
Quarter: 2007Q4

REPORT INFORMATION
  Report Type: 
  Country: None (occurrence: None)
  Receive Date: 20071005
  Receipt Date: 20070925
  Transmission Date: 20080405
  Serious: Yes (Other)
  Sender: FDA-Public Use
  Company Number: CA-JNJFOC-20070103352

PATIENT
  Sex: Female
  Weight: 89 kg

DRUGS (17)
  1. REMICADE [Suspect]
     Indication: GASTROINTESTINAL INFLAMMATION
     Route: 042
  2. REMICADE [Suspect]
     Indication: ANKYLOSING SPONDYLITIS
     Dosage: WEEKS 0,2, AND 6
     Route: 042
  3. METHOTREXATE [Concomitant]
     Route: 058
  4. CELEBREX [Concomitant]
  5. CYCLOBENZAPRINE HCL [Concomitant]
  6. SULFASALAZINE [Concomitant]
  7. EFFEXOR XR [Concomitant]
     Route: 048
  8. EFFEXOR XR [Concomitant]
     Route: 048
  9. TOPIRAMATE [Concomitant]
     Route: 048
  10. CLONAZEPAM [Concomitant]
  11. NEXIUM [Concomitant]
  12. FOLIC ACID [Concomitant]
  13. ALPRAZOLAM [Concomitant]
  14. SEROQUEL [Concomitant]
  15. GABAPENTIN [Concomitant]
  16. PULMICORT [Concomitant]
  17. VITAMINS [Concomitant]

REACTIONS (11)
  - ANAL FISSURE [None]
  - ARTHRALGIA [None]
  - CARPAL TUNNEL SYNDROME [None]
  - CONDITION AGGRAVATED [None]
  - DRUG INEFFECTIVE [None]
  - FALL [None]
  - GASTROINTESTINAL DISORDER [None]
  - NO THERAPEUTIC RESPONSE [None]
  - PARAESTHESIA [None]
  - TYPE IV HYPERSENSITIVITY REACTION [None]
  - URTICARIA [None]
